FAERS Safety Report 15650124 (Version 1)
Quarter: 2018Q4

REPORT INFORMATION
  Report Type: Spontaneous
  Country: IT (occurrence: IT)
  Receive Date: 20181123
  Receipt Date: 20181123
  Transmission Date: 20190205
  Serious: Yes (Hospitalization)
  Sender: FDA-Public Use
  Company Number: IT-UCBSA-2018051594

PATIENT
  Age: 82 Year
  Sex: Male

DRUGS (1)
  1. KEPPRA [Suspect]
     Active Substance: LEVETIRACETAM
     Indication: EPILEPSY
     Dosage: 1000MG DAILY
     Route: 048
     Dates: start: 20170101, end: 20170611

REACTIONS (3)
  - Sopor [Unknown]
  - Epilepsy [Unknown]
  - Tremor [Unknown]

NARRATIVE: CASE EVENT DATE: 20170611
